FAERS Safety Report 6535433-0 (Version None)
Quarter: 2009Q4

REPORT INFORMATION
  Report Type: 
  Country: None (occurrence: None)
  Receive Date: 20091228
  Receipt Date: 20090521
  Transmission Date: 20100525
  Serious: Yes (Other)
  Sender: FDA-Public Use
  Company Number: US-002943

PATIENT
  Age: 46 Year
  Sex: Female
  Weight: 52 kg

DRUGS (3)
  1. MULTIHANCE [Suspect]
     Indication: MULTIPLE SCLEROSIS
     Dosage: 5.5ML QD INTRAVENOUS
     Route: 042
     Dates: start: 20090521, end: 20090521
  2. MULTIHANCE [Suspect]
     Indication: NUCLEAR MAGNETIC RESONANCE IMAGING
     Dosage: 5.5ML QD INTRAVENOUS
     Route: 042
     Dates: start: 20090521, end: 20090521
  3. POTASSIUM (POTASSIUM CHLORIDE) [Concomitant]

REACTIONS (4)
  - DYSPNOEA [None]
  - HYPOTENSION [None]
  - NAUSEA [None]
  - VOMITING [None]
